FAERS Safety Report 6579312-1 (Version None)
Quarter: 2010Q1

REPORT INFORMATION
  Report Type: 
  Country: None (occurrence: None)
  Receive Date: 20100203
  Receipt Date: 20100125
  Transmission Date: 20100710
  Serious: Yes (Death)
  Sender: FDA-Public Use
  Company Number: PHO-2010-002

PATIENT
  Age: 70 Year
  Sex: Female

DRUGS (1)
  1. PHOTOFRIN [Suspect]
     Indication: SQUAMOUS CELL CARCINOMA
     Dosage: 2 MG/KG BODY WEIGHT
     Dates: start: 20010813, end: 20030714

REACTIONS (5)
  - METASTATIC NEOPLASM [None]
  - NEOPLASM RECURRENCE [None]
  - OFF LABEL USE [None]
  - ORAL CAVITY FISTULA [None]
  - SQUAMOUS CELL CARCINOMA [None]
